FAERS Safety Report 9517003 (Version 1)
Quarter: 2013Q3

REPORT INFORMATION
  Report Type: Spontaneous
  Country: US (occurrence: US)
  Receive Date: 20130911
  Receipt Date: 20130911
  Transmission Date: 20140515
  Serious: No
  Sender: FDA-Public Use
  Company Number: US-ASTRAZENECA-2013SE51991

PATIENT
  Age: 33 Year
  Sex: Female
  Weight: 49 kg

DRUGS (5)
  1. SYMBICORT [Suspect]
     Indication: ASTHMA
     Dosage: 160/4.5, TWO INHALATIONS, TWICE DAILY
     Route: 055
     Dates: start: 201304, end: 201306
  2. ZOLOFT [Concomitant]
  3. PRO-AIR [Concomitant]
     Indication: ASTHMA
     Dates: start: 201212
  4. ADVAIR [Concomitant]
     Indication: ASTHMA
     Dates: start: 201212
  5. LUTERA [Concomitant]
     Indication: CONTRACEPTION

REACTIONS (2)
  - Tuberculosis [Recovering/Resolving]
  - Cough [Recovering/Resolving]
